FAERS Safety Report 9265812 (Version 1)
Quarter: 2013Q2

REPORT INFORMATION
  Report Type: Report from Study
  Country: GB (occurrence: GB)
  Receive Date: 20130501
  Receipt Date: 20130501
  Transmission Date: 20140414
  Serious: Yes (Hospitalization)
  Sender: FDA-Public Use
  Company Number: GB-GLAXOSMITHKLINE-B0838748A

PATIENT
  Age: 77 Year
  Sex: Male
  Weight: 73.7 kg

DRUGS (17)
  1. OFATUMUMAB [Suspect]
     Indication: CHRONIC LYMPHOCYTIC LEUKAEMIA
     Route: 042
     Dates: start: 20120912
  2. BENDAMUSTINE [Suspect]
     Indication: CHRONIC LYMPHOCYTIC LEUKAEMIA
     Route: 042
     Dates: start: 20120913
  3. ALLOPURINOL [Suspect]
     Indication: CHEMOTHERAPY
     Dosage: 300MG PER DAY
     Route: 048
     Dates: start: 20120912
  4. ACICLOVIR [Suspect]
     Indication: CHEMOTHERAPY
     Dosage: 400MG TWICE PER DAY
     Route: 048
     Dates: start: 20120912
  5. CANDESARTAN [Concomitant]
     Indication: HYPERTENSION
     Dosage: 20MG PER DAY
     Route: 048
     Dates: start: 20020228
  6. SIMVASTATIN [Concomitant]
     Indication: HYPERCHOLESTEROLAEMIA
     Dosage: 40MG PER DAY
     Route: 048
  7. CIPROFIBRATE [Concomitant]
     Indication: HYPERLIPIDAEMIA
     Dosage: 100MG PER DAY
     Route: 048
  8. PARACETAMOL [Concomitant]
     Indication: THERAPEUTIC PROCEDURE
     Route: 048
     Dates: start: 20120912, end: 20120919
  9. CHLORPHENIRAMINE [Concomitant]
     Indication: THERAPEUTIC PROCEDURE
     Route: 042
     Dates: start: 20120912, end: 20120919
  10. ISOSORBIDE MONONITRATE [Concomitant]
     Indication: PAIN
     Dosage: 25MG PER DAY
     Route: 048
  11. PREDNISOLONE [Concomitant]
     Indication: THERAPEUTIC PROCEDURE
     Route: 048
     Dates: start: 20120912, end: 20120919
  12. SOTALOL [Concomitant]
     Indication: ARRHYTHMIA
     Dosage: 80MG PER DAY
     Route: 048
  13. BUPIVACAIN/MORPHINE [Concomitant]
     Indication: PAIN
     Dosage: 10MCG WEEKLY
  14. METOCLOPRAMIDE [Concomitant]
     Indication: CHEMOTHERAPY
     Dosage: 10MG AS REQUIRED
     Route: 048
     Dates: start: 20120912
  15. GCSF [Concomitant]
  16. NABUMETONE [Concomitant]
     Indication: ARTHRITIS
     Route: 048
     Dates: start: 20020308
  17. RANITIDINE [Concomitant]
     Dosage: 150MG TWICE PER DAY
     Dates: start: 20120912

REACTIONS (1)
  - Infection [Not Recovered/Not Resolved]
